FAERS Safety Report 5893034-1 (Version None)
Quarter: 2008Q3

REPORT INFORMATION
  Report Type: 
  Country: None (occurrence: None)
  Receive Date: 20080923
  Receipt Date: 20070410
  Transmission Date: 20090109
  Serious: No
  Sender: FDA-Public Use
  Company Number: US-ASTRAZENECA-2007UW01922

PATIENT
  Age: 19737 Day
  Sex: Female
  Weight: 109.1 kg

DRUGS (3)
  1. SEROQUEL [Suspect]
     Indication: DEPRESSION
     Route: 048
     Dates: start: 20030701, end: 20060401
  2. SEROQUEL [Suspect]
     Indication: INSOMNIA
     Route: 048
     Dates: start: 20030701, end: 20060401
  3. ZYPREXA [Concomitant]
     Dates: start: 20010101, end: 20030101

REACTIONS (4)
  - BLOOD CHOLESTEROL INCREASED [None]
  - BLOOD TRIGLYCERIDES INCREASED [None]
  - HYSTERECTOMY [None]
  - TYPE 2 DIABETES MELLITUS [None]
